FAERS Safety Report 25736646 (Version 1)
Quarter: 2025Q3

REPORT INFORMATION
  Report Type: Spontaneous
  Country: CA (occurrence: CA)
  Receive Date: 20250828
  Receipt Date: 20250828
  Transmission Date: 20251020
  Serious: Yes (Life-Threatening, Hospitalization, Other)
  Sender: PFIZER
  Company Number: CA-PFIZER INC-202500169667

PATIENT
  Age: 26 Year
  Sex: Female

DRUGS (3)
  1. IXIFI [Suspect]
     Active Substance: INFLIXIMAB-QBTX
     Indication: Crohn^s disease
     Route: 042
     Dates: start: 20250718
  2. IXIFI [Suspect]
     Active Substance: INFLIXIMAB-QBTX
     Dates: start: 2025
  3. PREDNISONE [Concomitant]
     Active Substance: PREDNISONE
     Dates: start: 20241201

REACTIONS (1)
  - Shock haemorrhagic [Unknown]

NARRATIVE: CASE EVENT DATE: 20250101
